FAERS Safety Report 25993595 (Version 1)
Quarter: 2025Q4

REPORT INFORMATION
  Report Type: Spontaneous
  Country: IN (occurrence: IN)
  Receive Date: 20251104
  Receipt Date: 20251104
  Transmission Date: 20260118
  Serious: Yes (Death, Other)
  Sender: COLLEGIUM PHARMACEUTICAL
  Company Number: IN-GRUNENTHAL-2025-124172

PATIENT
  Age: 24 Year
  Sex: Male

DRUGS (1)
  1. NUCYNTA [Suspect]
     Active Substance: TAPENTADOL HYDROCHLORIDE
     Indication: Product used for unknown indication
     Dosage: UNK, UNKNOWN
     Route: 042

REACTIONS (9)
  - Drug abuse [Fatal]
  - Interstitial lung disease [Fatal]
  - Right ventricular hypertrophy [Fatal]
  - Reaction to excipient [Fatal]
  - Thrombophlebitis [Fatal]
  - Loss of consciousness [Fatal]
  - Incorrect route of product administration [Unknown]
  - Wrong technique in product usage process [Unknown]
  - Overdose [Unknown]
